FAERS Safety Report 7517238-7 (Version None)
Quarter: 2011Q2

REPORT INFORMATION
  Report Type: 
  Country: None (occurrence: None)
  Receive Date: 20110601
  Receipt Date: 20110518
  Transmission Date: 20111010
  Serious: Yes (Hospitalization)
  Sender: FDA-Public Use
  Company Number: NL-GENENTECH-317167

PATIENT
  Sex: Female
  Weight: 77 kg

DRUGS (9)
  1. RITUXIMAB [Suspect]
     Dosage: 950 MG, UNK
     Route: 042
     Dates: end: 20110504
  2. DEXAMETHASONE [Suspect]
     Dosage: 160 MG, UNK
     Route: 042
     Dates: end: 20110504
  3. DEXAMETHASONE [Suspect]
     Indication: MALIGNANT LYMPHOID NEOPLASM
     Dosage: 190 MG, UNK
     Route: 042
     Dates: start: 20110407
  4. CISPLATIN [Suspect]
     Dosage: 190 MG, UNK
     Route: 042
     Dates: end: 20110505
  5. CYTARABINE [Suspect]
     Indication: MALIGNANT LYMPHOID NEOPLASM
     Dosage: 3800 MG, UNK
     Route: 042
     Dates: start: 20110408
  6. RITUXIMAB [Suspect]
     Indication: MALIGNANT LYMPHOID NEOPLASM
     Dosage: 715 MG, UNK
     Route: 042
     Dates: start: 20110406
  7. CISPLATIN [Suspect]
     Indication: MALIGNANT LYMPHOID NEOPLASM
     Dosage: 40 MG, UNK
     Route: 042
     Dates: start: 20110407, end: 20110409
  8. CYTARABINE [Suspect]
     Dosage: 7.6 G, UNK
     Route: 042
     Dates: end: 20110506
  9. DARBEPOETIN ALFA [Concomitant]
     Indication: PRODUCT USED FOR UNKNOWN INDICATION
     Dosage: UNK
     Dates: start: 20110427

REACTIONS (2)
  - EPISTAXIS [None]
  - THROMBOCYTOPENIA [None]
